FAERS Safety Report 15352143 (Version 1)
Quarter: 2018Q3

REPORT INFORMATION
  Report Type: Spontaneous
  Country: KR (occurrence: KR)
  Receive Date: 20180905
  Receipt Date: 20180905
  Transmission Date: 20181010
  Serious: Yes (Death, Other)
  Sender: FDA-Public Use
  Company Number: KR-BAUSCH-BL-2018-023306

PATIENT
  Age: 53 Year
  Sex: Male

DRUGS (1)
  1. DEXAMETHASONE. [Suspect]
     Active Substance: DEXAMETHASONE
     Indication: ERDHEIM-CHESTER DISEASE
     Route: 065

REACTIONS (4)
  - Erdheim-Chester disease [Unknown]
  - Disease progression [Unknown]
  - Hepatorenal syndrome [Unknown]
  - Hepatic failure [Fatal]
